FAERS Safety Report 18233482 (Version 1)
Quarter: 2020Q3

REPORT INFORMATION
  Report Type: Spontaneous
  Country: US (occurrence: US)
  Receive Date: 20200904
  Receipt Date: 20200904
  Transmission Date: 20201103
  Serious: No
  Sender: FDA-Public Use
  Company Number: None

PATIENT
  Age: 23 Year
  Sex: Female
  Weight: 72 kg

DRUGS (3)
  1. ALBUTEROL SULFATE. [Suspect]
     Active Substance: ALBUTEROL SULFATE
     Indication: ASTHMA
     Dosage: ?          QUANTITY:200 PUFF(S);?
     Route: 055
  2. ALBUTEROL SULFATE. [Concomitant]
     Active Substance: ALBUTEROL SULFATE
  3. BUDESONIDE AND FORMOTEROL FUMARATE INHATION AEROSOL [Concomitant]

REACTIONS (6)
  - Asthma [None]
  - Drug ineffective [None]
  - Prescription drug used without a prescription [None]
  - Drug dose omission by device [None]
  - Throat irritation [None]
  - Product taste abnormal [None]

NARRATIVE: CASE EVENT DATE: 20200820
